FAERS Safety Report 11375721 (Version 1)
Quarter: 2015Q3

REPORT INFORMATION
  Report Type: Other
  Country: GB (occurrence: GB)
  Receive Date: 20150813
  Receipt Date: 20150813
  Transmission Date: 20151125
  Serious: Yes (Death, Other)
  Sender: FDA-Public Use
  Company Number: GB-ACTELION-A-CH2015-122256

PATIENT
  Age: 7 Year
  Sex: Female
  Weight: 24 kg

DRUGS (5)
  1. LEVOSIMENDAN [Concomitant]
     Active Substance: LEVOSIMENDAN
  2. VELETRI [Suspect]
     Active Substance: EPOPROSTENOL
     Indication: PORTOPULMONARY HYPERTENSION
     Route: 042
  3. NITRIC OXIDE. [Concomitant]
     Active Substance: NITRIC OXIDE
  4. SILDENAFIL. [Concomitant]
     Active Substance: SILDENAFIL
  5. AMBRISENTAN [Concomitant]
     Active Substance: AMBRISENTAN

REACTIONS (12)
  - Complications of transplanted liver [Unknown]
  - Renal failure [Unknown]
  - Multi-organ failure [Unknown]
  - Abdominal compartment syndrome [Unknown]
  - Post procedural complication [Fatal]
  - Intra-abdominal haematoma [Unknown]
  - Alanine aminotransferase increased [Unknown]
  - Haematoma evacuation [Unknown]
  - Intra-abdominal haemorrhage [Unknown]
  - Transfusion [Unknown]
  - Abdominal cavity drainage [Unknown]
  - Laparotomy [Unknown]
